FAERS Safety Report 10194211 (Version 1)
Quarter: 2014Q2

REPORT INFORMATION
  Report Type: Spontaneous
  Country: US (occurrence: US)
  Receive Date: 20140524
  Receipt Date: 20140524
  Transmission Date: 20141212
  Serious: No
  Sender: FDA-Public Use
  Company Number: US-SANOFI-AVENTIS-2013SA070448

PATIENT
  Age: 58 Year
  Sex: Male

DRUGS (9)
  1. LANTUS SOLOSTAR [Suspect]
     Indication: TYPE 2 DIABETES MELLITUS
     Dosage: TAKEN FROM- 2 MONTHS DOSE:25 UNIT(S)
     Route: 051
  2. SOLOSTAR [Suspect]
     Indication: TYPE 2 DIABETES MELLITUS
     Dosage: TAKEN FROM- 2 MONTHS
  3. GLUCOPHAGE [Concomitant]
  4. GLYBURIDE [Concomitant]
  5. CLONIDINE [Concomitant]
  6. PLAVIX [Concomitant]
  7. ACCUPRIL [Concomitant]
  8. HYDROCHLOROTHIAZIDE [Concomitant]
  9. SPIRONOLACTONE [Concomitant]

REACTIONS (5)
  - Asthenia [Not Recovered/Not Resolved]
  - Nausea [Not Recovered/Not Resolved]
  - Blood pressure increased [Not Recovered/Not Resolved]
  - Blood glucose increased [Not Recovered/Not Resolved]
  - Drug dose omission [Unknown]
